FAERS Safety Report 7970219-1 (Version None)
Quarter: 2011Q4

REPORT INFORMATION
  Report Type: 
  Country: None (occurrence: None)
  Receive Date: 20111212
  Receipt Date: 20111205
  Transmission Date: 20120403
  Serious: No
  Sender: FDA-Public Use
  Company Number: IT-JNJFOC-20111009790

PATIENT
  Sex: Female

DRUGS (3)
  1. ESCITALOPRAM [Concomitant]
     Indication: DEPRESSION
     Route: 065
  2. RISPERDAL [Suspect]
     Indication: DEPRESSION
     Dosage: 8 TABLETS OF RISPERIDONE (TABLETS, ORAL, 2 MG)
     Route: 048
     Dates: start: 20111020, end: 20111020
  3. RAMIPRIL [Concomitant]
     Indication: HYPERTENSION
     Route: 065

REACTIONS (1)
  - SOMNOLENCE [None]
